FAERS Safety Report 8027869-6 (Version None)
Quarter: 2012Q1

REPORT INFORMATION
  Report Type: 
  Country: None (occurrence: None)
  Receive Date: 20120104
  Receipt Date: 20111219
  Transmission Date: 20120608
  Serious: Yes (Life-Threatening, Hospitalization, Other)
  Sender: FDA-Public Use
  Company Number: AUR-APL-2011-06335

PATIENT
  Age: 52 Year
  Sex: Male

DRUGS (9)
  1. RAMIPRIL [Suspect]
     Indication: PRODUCT USED FOR UNKNOWN INDICATION
     Dosage: (140 MG)
  2. OMEPRAZOLE [Concomitant]
  3. ASPIRIN [Concomitant]
  4. NICORANDIL (NICORANDIL) [Suspect]
     Indication: PRODUCT USED FOR UNKNOWN INDICATION
     Dosage: (120 MG)
  5. SIMVASTATIN [Concomitant]
  6. DILTIAZEM [Suspect]
     Indication: PRODUCT USED FOR UNKNOWN INDICATION
     Dosage: (3900 MG, 1 D)
  7. TAMSULOISIN (TAMSULOISIN) [Concomitant]
  8. CITALOPRAM HYDROBROMIDE [Concomitant]
  9. ISOSORBIDE MONONITRATE [Suspect]
     Indication: PRODUCT USED FOR UNKNOWN INDICATION
     Dosage: (800 MG)

REACTIONS (2)
  - TOXICITY TO VARIOUS AGENTS [None]
  - OVERDOSE [None]
